FAERS Safety Report 9654423 (Version 1)
Quarter: 2013Q4

REPORT INFORMATION
  Report Type: Spontaneous
  Country: TN (occurrence: TN)
  Receive Date: 20131029
  Receipt Date: 20131029
  Transmission Date: 20140711
  Serious: Yes (Hospitalization, Disabling)
  Sender: FDA-Public Use
  Company Number: PHHY2013TN121764

PATIENT
  Age: 60 Year
  Sex: Female

DRUGS (1)
  1. TASIGNA [Suspect]
     Indication: CHRONIC MYELOID LEUKAEMIA
     Dosage: 400 MG, BID
     Route: 048

REACTIONS (2)
  - Necrosis [Recovered/Resolved with Sequelae]
  - Peripheral artery thrombosis [Recovered/Resolved with Sequelae]
